FAERS Safety Report 22631336 (Version 1)
Quarter: 2023Q2

REPORT INFORMATION
  Report Type: Spontaneous
  Country: CN (occurrence: CN)
  Receive Date: 20230623
  Receipt Date: 20230623
  Transmission Date: 20230721
  Serious: Yes (Other)
  Sender: FDA-Public Use
  Company Number: CN-NOVITIUMPHARMA-2023CNNVP00977

PATIENT
  Age: 14 Year
  Sex: Male

DRUGS (2)
  1. PREDNISONE [Suspect]
     Active Substance: PREDNISONE
     Indication: Juvenile idiopathic arthritis
  2. THALIDOMIDE [Concomitant]
     Active Substance: THALIDOMIDE
     Indication: Juvenile idiopathic arthritis

REACTIONS (1)
  - Herpes zoster disseminated [Recovered/Resolved]
